FAERS Safety Report 8931151 (Version 1)
Quarter: 2012Q4

REPORT INFORMATION
  Report Type: 
  Country: US (occurrence: US)
  Receive Date: 20121128
  Receipt Date: 20121128
  Transmission Date: 20130627
  Serious: No
  Sender: FDA-Public Use
  Company Number: US-TEVA-369810USA

PATIENT
  Age: 16 Year
  Sex: Female

DRUGS (2)
  1. NUVIGIL [Suspect]
     Indication: NARCOLEPSY
     Dosage: QAM for two days
     Route: 048
  2. NUVIGIL [Suspect]
     Dosage: once daily other days

REACTIONS (6)
  - Palpitations [Unknown]
  - Anxiety [Unknown]
  - Headache [Unknown]
  - Abdominal discomfort [Unknown]
  - Hypertension [Unknown]
  - Off label use [Unknown]
